FAERS Safety Report 8967427 (Version 2)
Quarter: 2013Q1

REPORT INFORMATION
  Report Type: Spontaneous
  Country: US (occurrence: US)
  Receive Date: 20121214
  Receipt Date: 20130115
  Transmission Date: 20140127
  Serious: Yes (Disabling)
  Sender: FDA-Public Use
  Company Number: US-US-EMD SERONO, INC.-7181229

PATIENT
  Sex: Female

DRUGS (4)
  1. REBIF [Suspect]
     Indication: PRODUCT USED FOR UNKNOWN INDICATION
     Route: 058
     Dates: start: 20021101
  2. VICODIN [Concomitant]
     Indication: PAIN
  3. CLONAZPEAM [Concomitant]
     Indication: PAIN
  4. ALEVE [Concomitant]
     Indication: PAIN

REACTIONS (4)
  - Optic neuritis [Recovering/Resolving]
  - Hyperhidrosis [Not Recovered/Not Resolved]
  - Flushing [Not Recovered/Not Resolved]
  - Central nervous system lesion [Not Recovered/Not Resolved]
